FAERS Safety Report 22058150 (Version 2)
Quarter: 2023Q1

REPORT INFORMATION
  Report Type: Spontaneous
  Country: US (occurrence: US)
  Receive Date: 20230303
  Receipt Date: 20230327
  Transmission Date: 20230417
  Serious: Yes (Other)
  Sender: FDA-Public Use
  Company Number: None

PATIENT
  Age: 20 Year
  Sex: Female

DRUGS (6)
  1. MYCOPHENOLATE MOFETIL [Suspect]
     Active Substance: MYCOPHENOLATE MOFETIL
     Indication: Glomerulonephritis membranoproliferative
     Dosage: 1000 MILLIGRAM, BID (TWICE DAILY)
     Route: 048
  2. TACROLIMUS [Suspect]
     Active Substance: TACROLIMUS
     Indication: Glomerulonephritis membranoproliferative
     Dosage: 1 MILLIGRAM, BID (TWICE DAILY)
     Route: 065
  3. PREDNISONE [Suspect]
     Active Substance: PREDNISONE
     Indication: Glomerulonephritis membranoproliferative
     Dosage: 10 MILLIGRAM, QD
     Route: 048
  4. PREDNISONE [Suspect]
     Active Substance: PREDNISONE
     Indication: Polyarthritis
     Dosage: 60 MILLIGRAM, QD
     Route: 048
  5. WARFARIN [Concomitant]
     Active Substance: WARFARIN
     Indication: Deep vein thrombosis
     Dosage: UNK
     Route: 065
  6. WARFARIN [Concomitant]
     Active Substance: WARFARIN
     Indication: Pulmonary embolism

REACTIONS (6)
  - Chronic cutaneous lupus erythematosus [Unknown]
  - Drug-induced liver injury [Unknown]
  - Post herpetic neuralgia [Unknown]
  - Herpes zoster [Recovered/Resolved]
  - Rash pruritic [Unknown]
  - Koebner phenomenon [Unknown]
